FAERS Safety Report 17142331 (Version 1)
Quarter: 2019Q4

REPORT INFORMATION
  Report Type: Spontaneous
  Country: US (occurrence: US)
  Receive Date: 20191211
  Receipt Date: 20191211
  Transmission Date: 20200122
  Serious: Yes (Other)
  Sender: FDA-Public Use
  Company Number: US-LUNDBECK-DKLU3008801

PATIENT
  Age: 8 Month
  Sex: Male

DRUGS (3)
  1. VIGABATRIN (FOR ORAL SOLUTION) [Suspect]
     Active Substance: VIGABATRIN
     Indication: GENERALISED TONIC-CLONIC SEIZURE
     Route: 065
  2. VIGABATRIN (FOR ORAL SOLUTION) [Suspect]
     Active Substance: VIGABATRIN
     Indication: MUSCLE SPASMS
  3. LEVETIRACETAM. [Concomitant]
     Active Substance: LEVETIRACETAM
     Indication: PRODUCT USED FOR UNKNOWN INDICATION
     Route: 065

REACTIONS (10)
  - Cerebral atrophy [Unknown]
  - Hyperreflexia [Unknown]
  - Dyskinesia [Unknown]
  - Encephalopathy [Recovering/Resolving]
  - Magnetic resonance imaging brain abnormal [Unknown]
  - Movement disorder [Recovering/Resolving]
  - Myoclonus [Unknown]
  - Somnolence [Unknown]
  - Poor feeding infant [Unknown]
  - Hypokinesia [Recovering/Resolving]
